FAERS Safety Report 20827972 (Version 1)
Quarter: 2022Q2

REPORT INFORMATION
  Report Type: Spontaneous
  Country: PL (occurrence: PL)
  Receive Date: 20220513
  Receipt Date: 20220513
  Transmission Date: 20220721
  Serious: Yes (Other)
  Sender: FDA-Public Use
  Company Number: PL-NOVARTISPH-NVSC2022PL098148

PATIENT
  Sex: Female

DRUGS (5)
  1. VIGAMOX [Suspect]
     Active Substance: MOXIFLOXACIN HYDROCHLORIDE
     Indication: Conjunctivitis
     Dosage: 5 MG
     Route: 065
  2. VIGAMOX [Suspect]
     Active Substance: MOXIFLOXACIN HYDROCHLORIDE
     Indication: Keratitis
     Dosage: 1 DRP (5 TIMES A DAY INTO THE LEFT EYE)
     Route: 047
     Dates: start: 20220422, end: 20220428
  3. CALCIUM [Concomitant]
     Active Substance: CALCIUM
     Indication: Product used for unknown indication
     Dosage: UNK
     Route: 065
  4. INDAPAMIDE [Concomitant]
     Active Substance: INDAPAMIDE
     Indication: Product used for unknown indication
     Dosage: 1 X 1 TABLET
     Route: 065
  5. SYMPRAMOL [Concomitant]
     Indication: Product used for unknown indication
     Dosage: UNK
     Route: 065

REACTIONS (14)
  - Solar lentigo [Recovered/Resolved]
  - Hypersensitivity [Recovered/Resolved]
  - Rash [Recovered/Resolved]
  - Pharyngeal oedema [Recovered/Resolved]
  - Renal pain [Recovered/Resolved]
  - Tongue discolouration [Recovered/Resolved]
  - Throat irritation [Recovered/Resolved]
  - Lip swelling [Recovered/Resolved]
  - Urticaria [Recovered/Resolved]
  - Swollen tongue [Recovered/Resolved]
  - Pharyngeal erythema [Recovered/Resolved]
  - Oesophageal pain [Recovered/Resolved]
  - Blister [Recovered/Resolved]
  - Burning sensation [Recovered/Resolved]
